FAERS Safety Report 9479202 (Version 1)
Quarter: 2013Q3

REPORT INFORMATION
  Report Type: Spontaneous
  Country: US (occurrence: US)
  Receive Date: 20130827
  Receipt Date: 20130827
  Transmission Date: 20140515
  Serious: No
  Sender: FDA-Public Use
  Company Number: US-TEVA-428758USA

PATIENT
  Age: 26 Year
  Sex: Female
  Weight: 113.5 kg

DRUGS (5)
  1. PLAN B ONE-STEP [Suspect]
     Indication: POST COITAL CONTRACEPTION
     Dosage: 1.5 MILLIGRAM DAILY;
     Route: 048
     Dates: start: 20130818, end: 20130818
  2. HERBALIFE [Concomitant]
     Indication: MEDICAL DIET
  3. BIOTIN [Concomitant]
     Indication: MEDICAL DIET
  4. VITAMINS [Concomitant]
     Indication: MEDICAL DIET
  5. ANTIBIOTIC [Concomitant]
     Indication: ANTIBIOTIC PROPHYLAXIS
     Route: 048

REACTIONS (3)
  - Headache [Not Recovered/Not Resolved]
  - Dizziness [Not Recovered/Not Resolved]
  - Menstruation irregular [Recovered/Resolved]
